FAERS Safety Report 4620384-9 (Version None)
Quarter: 2005Q1

REPORT INFORMATION
  Report Type: 
  Country: None (occurrence: None)
  Receive Date: 20050324
  Receipt Date: 20050312
  Transmission Date: 20050727
  Serious: Yes (Other)
  Sender: FDA-Public Use
  Company Number: 2005044028

PATIENT
  Age: 50 Year
  Sex: Female

DRUGS (4)
  1. BEXTRA [Suspect]
     Indication: ILL-DEFINED DISORDER
     Dosage: 40 MG (20 MG, 2 IN 1 D)
  2. DICLOFENAC SODIUM [Concomitant]
     Indication: ILL-DEFINED DISORDER
  3. ROFECOXIB [Suspect]
     Indication: ILL-DEFINED DISORDER
  4. HYDROMORPHONE HCL [Suspect]
     Indication: ILL-DEFINED DISORDER

REACTIONS (7)
  - COAGULOPATHY [None]
  - MULTI-ORGAN FAILURE [None]
  - POST PROCEDURAL NAUSEA [None]
  - RENAL FAILURE [None]
  - RENAL TUBULAR NECROSIS [None]
  - SHOULDER OPERATION [None]
  - VASCULAR OCCLUSION [None]
